FAERS Safety Report 24120501 (Version 2)
Quarter: 2024Q3

REPORT INFORMATION
  Report Type: Spontaneous
  Country: PH (occurrence: PH)
  Receive Date: 20240722
  Receipt Date: 20240725
  Transmission Date: 20241017
  Serious: Yes (Other)
  Sender: PFIZER
  Company Number: PH-PFIZER INC-PV202400091925

PATIENT
  Age: 33 Year
  Sex: Female

DRUGS (6)
  1. GEMCITABINE HYDROCHLORIDE [Suspect]
     Active Substance: GEMCITABINE HYDROCHLORIDE
     Indication: Follicular dendritic cell sarcoma
     Dosage: 900 MG/M2, CYCLIC, ON DAYS 1 AND 8
  2. DOCETAXEL [Suspect]
     Active Substance: DOCETAXEL\DOCETAXEL ANHYDROUS
     Indication: Follicular dendritic cell sarcoma
     Dosage: 100 MG/M2, CYCLIC, DAY 8 OF A 21-DAY CYCLE
  3. DOXORUBICIN HYDROCHLORIDE [Suspect]
     Active Substance: DOXORUBICIN HYDROCHLORIDE
     Indication: Follicular dendritic cell sarcoma
     Dosage: 60 MG/M2, CYCLIC, EVERY 21 DAYS
  4. IFOSFAMIDE [Suspect]
     Active Substance: IFOSFAMIDE
     Indication: Follicular dendritic cell sarcoma
     Dosage: 3.5 G/M2, CYCLIC, HIGH DOSE
  5. ETOPOSIDE [Suspect]
     Active Substance: ETOPOSIDE
     Indication: Follicular dendritic cell sarcoma
     Dosage: 100 MG/M2, CYCLIC, DAILY FOR 5 DAYS EVERY 21 DAYS
  6. BENDAMUSTINE [Concomitant]
     Active Substance: BENDAMUSTINE
     Indication: Follicular dendritic cell sarcoma
     Dosage: UNK UNK, CYCLIC

REACTIONS (4)
  - Leukopenia [Unknown]
  - Alopecia [Unknown]
  - Anaemia [Unknown]
  - Off label use [Unknown]
